FAERS Safety Report 11011165 (Version 1)
Quarter: 2015Q2

REPORT INFORMATION
  Report Type: Spontaneous
  Country: US (occurrence: US)
  Receive Date: 20150410
  Receipt Date: 20150410
  Transmission Date: 20150821
  Serious: No
  Sender: FDA-Public Use
  Company Number: US-TEVA-553857USA

PATIENT
  Age: 31 Year
  Sex: Female
  Weight: 84.44 kg

DRUGS (1)
  1. PARAGARD T 380A [Suspect]
     Active Substance: COPPER
     Indication: CONTRACEPTION
     Route: 015
     Dates: start: 200504, end: 20150407

REACTIONS (6)
  - Pain [Recovering/Resolving]
  - Abdominal pain lower [Recovering/Resolving]
  - Painful defaecation [Not Recovered/Not Resolved]
  - Device breakage [Not Recovered/Not Resolved]
  - Back pain [Recovering/Resolving]
  - Dyspareunia [Not Recovered/Not Resolved]

NARRATIVE: CASE EVENT DATE: 20150407
